FAERS Safety Report 8558232-7 (Version None)
Quarter: 2012Q3

REPORT INFORMATION
  Report Type: 
  Country: None (occurrence: None)
  Receive Date: 20120801
  Receipt Date: 20120726
  Transmission Date: 20120928
  Serious: Yes (Hospitalization)
  Sender: FDA-Public Use
  Company Number: PHHY2012CH065323

PATIENT
  Age: 79 Year
  Sex: Male

DRUGS (7)
  1. CORDARONE [Concomitant]
     Indication: SINUS RHYTHM
     Route: 048
  2. MADOPAR [Concomitant]
  3. ENALAPRIL MALEATE AND HYDROCHLOROTHIAZIDE [Concomitant]
  4. AMLODIPINE [Concomitant]
     Route: 048
  5. SINTROM [Suspect]
     Indication: ATRIAL FIBRILLATION
     Route: 048
     Dates: end: 20120212
  6. CITALOPRAM HYDROBROMIDE [Suspect]
     Dosage: 20 MG, DAILY
     Route: 048
  7. ATORVASTATIN CALCIUM [Concomitant]

REACTIONS (4)
  - HYPOAESTHESIA [None]
  - HEMIPARESIS [None]
  - HAEMORRHAGIC STROKE [None]
  - LOSS OF PROPRIOCEPTION [None]
